FAERS Safety Report 17064253 (Version 2)
Quarter: 2019Q4

REPORT INFORMATION
  Report Type: Spontaneous
  Country: US (occurrence: US)
  Receive Date: 20191122
  Receipt Date: 20191127
  Transmission Date: 20200122
  Serious: No
  Sender: FDA-Public Use
  Company Number: US-PFIZER INC-2019107261

PATIENT
  Age: 63 Year
  Sex: Female

DRUGS (1)
  1. LYRICA [Suspect]
     Active Substance: PREGABALIN
     Dosage: 100 MG, 4X/DAY (EVERY 6 HOURS)(4 PER DAY)/(TAKE ONE CAPSULE BY ORAL ROUTE EVERY 6 HOURS)
     Route: 048

REACTIONS (1)
  - Depressed mood [Unknown]
